FAERS Safety Report 21533954 (Version 1)
Quarter: 2022Q4

REPORT INFORMATION
  Report Type: Spontaneous
  Country: US (occurrence: US)
  Receive Date: 20221101
  Receipt Date: 20221101
  Transmission Date: 20230113
  Serious: No
  Sender: FDA-Public Use
  Company Number: US-NOVARTISTESTPH-NVSC2022US243737

PATIENT
  Age: 28 Year
  Sex: Female

DRUGS (1)
  1. GLATOPA [Suspect]
     Active Substance: GLATIRAMER ACETATE
     Indication: Product used for unknown indication
     Dosage: 3 MG, QW
     Route: 065

REACTIONS (3)
  - Weight decreased [Recovering/Resolving]
  - Symptom recurrence [Unknown]
  - Lethargy [Unknown]
